FAERS Safety Report 5126162-9 (Version None)
Quarter: 2006Q3

REPORT INFORMATION
  Report Type: 
  Country: None (occurrence: None)
  Receive Date: 20060823
  Receipt Date: 20050817
  Transmission Date: 20061208
  Serious: Yes (Other)
  Sender: FDA-Public Use
  Company Number: 2005117105

PATIENT
  Age: 50 Year
  Sex: Female
  Weight: 102.5129 kg

DRUGS (4)
  1. NORVASC [Suspect]
     Indication: BLOOD PRESSURE INCREASED
     Dosage: 5 MG (5 MG, 1 IN 1 D), ORAL
     Route: 048
     Dates: start: 20050725
  2. ENALAPRIL MALEATE [Suspect]
     Indication: BLOOD PRESSURE INCREASED
     Dosage: UNK (UNKNOWN), UNKNOWN
     Dates: end: 20050808
  3. SYNTHROID [Concomitant]
  4. HYDROCHLOROTHIAZIDE [Concomitant]

REACTIONS (2)
  - SWELLING [None]
  - URTICARIA [None]
